FAERS Safety Report 23173977 (Version 1)
Quarter: 2023Q4

REPORT INFORMATION
  Report Type: Spontaneous
  Country: CN (occurrence: CN)
  Receive Date: 20231112
  Receipt Date: 20231112
  Transmission Date: 20240110
  Serious: Yes (Hospitalization, Other)
  Sender: FDA-Public Use
  Company Number: None

PATIENT
  Age: 74 Year
  Sex: Male
  Weight: 64 kg

DRUGS (4)
  1. IFOSFAMIDE [Suspect]
     Active Substance: IFOSFAMIDE
     Indication: Lung neoplasm malignant
     Dosage: 1 G, ONE TIME IN ONE DAY, D1-4, DILUTED WITH 500 ML 0.9 % SODIUM CHLORIDE
     Route: 041
     Dates: start: 20201104, end: 20201107
  2. SODIUM CHLORIDE [Suspect]
     Active Substance: SODIUM CHLORIDE
     Indication: Medication dilution
     Dosage: 500 ML, ONE TIME IN ONE DAY, D1-4 USED TO DILUTE 1 G IFOSFAMIDE
     Route: 041
     Dates: start: 20201104, end: 20201107
  3. DEXTROSE [Suspect]
     Active Substance: DEXTROSE\DEXTROSE MONOHYDRATE
     Indication: Medication dilution
     Dosage: 50 ML, ONE TIME IN ONE DAY, D1-3 USED TO DILUTE 40 MG PIRARUBICIN HYDROCHLORIDE
     Route: 041
     Dates: start: 20201104, end: 20201106
  4. PIRARUBICIN HYDROCHLORIDE [Suspect]
     Active Substance: PIRARUBICIN HYDROCHLORIDE
     Indication: Lung neoplasm malignant
     Dosage: 40 MG, ONE TIME IN ONE DAY, D1-3, DILUTED WITH 50 ML 5 % GLUCOSE
     Route: 041
     Dates: start: 20201104, end: 20201106

REACTIONS (4)
  - Myelosuppression [Recovering/Resolving]
  - Neutrophil count decreased [Recovering/Resolving]
  - White blood cell count decreased [Recovering/Resolving]
  - Anaemia [Recovering/Resolving]

NARRATIVE: CASE EVENT DATE: 20201201
